FAERS Safety Report 9921394 (Version 2)
Quarter: 2014Q1

REPORT INFORMATION
  Report Type: Spontaneous
  Country: FR (occurrence: FR)
  Receive Date: 20140225
  Receipt Date: 20140313
  Transmission Date: 20141002
  Serious: Yes (Disabling)
  Sender: FDA-Public Use
  Company Number: FR-JNJFOC-20140210101

PATIENT
  Age: 48 Year
  Sex: Female

DRUGS (6)
  1. EPITOMAX [Suspect]
     Indication: MIGRAINE
     Route: 048
     Dates: start: 201303, end: 20131220
  2. KETOPROFEN [Suspect]
     Indication: HEADACHE
     Route: 048
     Dates: start: 201303, end: 20131220
  3. KARDEGIC [Concomitant]
     Indication: PLATELET AGGREGATION INHIBITION
     Route: 048
  4. LAROXYL ROCHE [Concomitant]
     Indication: PRODUCT USED FOR UNKNOWN INDICATION
     Dosage: SINCE 10 YEARS
     Route: 048
  5. SYMBICORT TURBUHALER [Concomitant]
     Indication: PRODUCT USED FOR UNKNOWN INDICATION
     Route: 055
  6. BRICANYL [Concomitant]
     Indication: PRODUCT USED FOR UNKNOWN INDICATION
     Route: 048

REACTIONS (1)
  - Neurosensory hypoacusis [Recovered/Resolved with Sequelae]
